FAERS Safety Report 8176390-3 (Version None)
Quarter: 2012Q1

REPORT INFORMATION
  Report Type: 
  Country: None (occurrence: None)
  Receive Date: 20120227
  Receipt Date: 20120227
  Transmission Date: 20120608
  Serious: Yes (Other)
  Sender: FDA-Public Use
  Company Number: None

PATIENT
  Age: 53 Year
  Sex: Female
  Weight: 63.05 kg

DRUGS (3)
  1. DURAGESIC-100 [Concomitant]
  2. LORTAB [Suspect]
     Indication: HYDROCEPHALUS
     Dosage: 1 QID (PO)
     Route: 048
  3. LORTAB [Suspect]
     Indication: PAIN
     Dosage: 1 QID (PO)
     Route: 048

REACTIONS (1)
  - DRUG EFFECT INCREASED [None]
